FAERS Safety Report 14879866 (Version 1)
Quarter: 2018Q2

REPORT INFORMATION
  Report Type: Spontaneous
  Country: US (occurrence: US)
  Receive Date: 20180511
  Receipt Date: 20180511
  Transmission Date: 20180711
  Serious: No
  Sender: FDA-Public Use
  Company Number: US-CIPLA LTD.-2018US11669

PATIENT

DRUGS (4)
  1. TOPIRAMATE. [Suspect]
     Active Substance: TOPIRAMATE
     Indication: TREMOR
     Dosage: 25 MG, QD
     Route: 048
     Dates: start: 201703
  2. VALSARTAN. [Concomitant]
     Active Substance: VALSARTAN
     Indication: HYPERTENSION
     Dosage: 160 MG, QD
     Route: 065
     Dates: start: 2014
  3. FLUNISOLIDE. [Concomitant]
     Active Substance: FLUNISOLIDE
     Indication: HYPERSENSITIVITY
     Dosage: 0.25 %, QD
     Route: 065
     Dates: start: 20180219
  4. PRIMIDONE. [Concomitant]
     Active Substance: PRIMIDONE
     Indication: TREMOR
     Dosage: 125 MG, QD
     Route: 065
     Dates: start: 2016

REACTIONS (2)
  - Eye pain [Not Recovered/Not Resolved]
  - Off label use [Unknown]

NARRATIVE: CASE EVENT DATE: 201703
